FAERS Safety Report 26034503 (Version 2)
Quarter: 2025Q4

REPORT INFORMATION
  Report Type: Spontaneous
  Country: US (occurrence: US)
  Receive Date: 20251112
  Receipt Date: 20251215
  Transmission Date: 20260117
  Serious: No
  Sender: PFIZER
  Company Number: US-PFIZER INC-PV202500131982

PATIENT
  Age: 63 Year
  Sex: Female

DRUGS (1)
  1. ELREXFIO [Suspect]
     Active Substance: ELRANATAMAB-BCMM
     Dosage: UNK

REACTIONS (2)
  - Arthralgia [Recovered/Resolved]
  - Skin exfoliation [Recovering/Resolving]
